FAERS Safety Report 8440841-7 (Version None)
Quarter: 2012Q2

REPORT INFORMATION
  Report Type: 
  Country: None (occurrence: None)
  Receive Date: 20120615
  Receipt Date: 20110505
  Transmission Date: 20120825
  Serious: No
  Sender: FDA-Public Use
  Company Number: US-NOVEN-11US002407

PATIENT
  Sex: Male

DRUGS (3)
  1. DAYTRANA [Suspect]
     Indication: PRODUCT USED FOR UNKNOWN INDICATION
     Dosage: 15 MG, QD
     Route: 062
     Dates: start: 20101101, end: 20110101
  2. DAYTRANA [Suspect]
     Dosage: 10 MG, QD
     Route: 062
     Dates: start: 20110101
  3. INTUNIV [Concomitant]
     Dosage: UNK
     Route: 048

REACTIONS (2)
  - DISTURBANCE IN SOCIAL BEHAVIOUR [None]
  - INAPPROPRIATE AFFECT [None]
